FAERS Safety Report 24345122 (Version 9)
Quarter: 2025Q1

REPORT INFORMATION
  Report Type: Spontaneous
  Country: US (occurrence: US)
  Receive Date: 20240920
  Receipt Date: 20250117
  Transmission Date: 20250408
  Serious: No
  Sender: PFIZER
  Company Number: US-PFIZER INC-PV202400109171

PATIENT
  Age: 13 Year
  Sex: Male

DRUGS (2)
  1. GENOTROPIN [Suspect]
     Active Substance: SOMATROPIN
     Indication: Hypopituitarism
     Dosage: ALTERNATE 1.6 MG AND 1.8 MG EVERY OTHER DAY (NIGHT) TO ACHIEVE ORDERED DOSE OF 1.7 MG/DAY
  2. GENOTROPIN [Suspect]
     Active Substance: SOMATROPIN
     Indication: Growth hormone deficiency
     Dosage: ALTERNATE 1.6 MG AND 1.8 MG EVERY OTHER DAY (NIGHT) TO ACHIEVE ORDERED DOSE OF 1.7 MG/DAY

REACTIONS (4)
  - Product preparation issue [Unknown]
  - Poor quality device used [Unknown]
  - Device leakage [Unknown]
  - Device deployment issue [Unknown]
